FAERS Safety Report 4475379-5 (Version None)
Quarter: 2004Q4

REPORT INFORMATION
  Report Type: 
  Country: None (occurrence: None)
  Receive Date: 20041014
  Receipt Date: 20041014
  Transmission Date: 20050328
  Serious: Yes (Hospitalization, Disabling)
  Sender: FDA-Public Use
  Company Number: None

PATIENT
  Sex: Male
  Weight: 81.6475 kg

DRUGS (15)
  1. HUMIRA [Suspect]
     Indication: RHEUMATOID ARTHRITIS
     Dosage: 40 MG TWICE WEEKLY SQ
     Route: 058
     Dates: start: 20020119, end: 20040808
  2. COLCHICINE [Concomitant]
  3. PREDNISONE [Concomitant]
  4. PLAQUENIL [Concomitant]
  5. RANITIDINE [Concomitant]
  6. LISINOPRIL [Concomitant]
  7. IMURAN [Concomitant]
  8. AMBIEN [Concomitant]
  9. ATENOLOL [Concomitant]
  10. HYDROXYZINE [Concomitant]
  11. PREVACID [Concomitant]
  12. LEXAPRO [Concomitant]
  13. HYDROCODONE [Concomitant]
  14. RHINOCORT [Concomitant]
  15. ETODOLAC [Concomitant]

REACTIONS (6)
  - BLINDNESS UNILATERAL [None]
  - HERPES SIMPLEX [None]
  - HERPES VIRUS INFECTION [None]
  - RETINAL INFARCTION [None]
  - SKIN LESION [None]
  - STAPHYLOCOCCAL ABSCESS [None]
